FAERS Safety Report 8117844-5 (Version None)
Quarter: 2012Q1

REPORT INFORMATION
  Report Type: 
  Country: None (occurrence: None)
  Receive Date: 20120207
  Receipt Date: 20120130
  Transmission Date: 20120608
  Serious: Yes (Other)
  Sender: FDA-Public Use
  Company Number: NO-US-EMD SERONO, INC.-7108275

PATIENT
  Sex: Female

DRUGS (6)
  1. CHORIONIC GONADOTROPIN [Concomitant]
     Indication: OVULATION INDUCTION
     Route: 058
     Dates: start: 20100808, end: 20100808
  2. ENOXAPARIN SODIUM [Concomitant]
     Indication: OFF LABEL USE
     Route: 058
     Dates: start: 20100728, end: 20100915
  3. GONAL-F [Suspect]
     Indication: IN VITRO FERTILISATION
     Route: 058
     Dates: start: 20100728, end: 20100807
  4. PREDNISOLONE [Concomitant]
     Indication: OFF LABEL USE
     Route: 048
     Dates: start: 20100728, end: 20100915
  5. PREDNISOLONE [Concomitant]
     Indication: ABORTION SPONTANEOUS
  6. ENOXAPARIN SODIUM [Concomitant]
     Indication: ABORTION SPONTANEOUS
     Route: 058
     Dates: start: 20100728, end: 20100915

REACTIONS (1)
  - PREMATURE DELIVERY [None]
